FAERS Safety Report 5158634-5 (Version None)
Quarter: 2006Q4

REPORT INFORMATION
  Report Type: 
  Country: None (occurrence: None)
  Receive Date: 20061128
  Receipt Date: 20061117
  Transmission Date: 20070319
  Serious: Yes (Hospitalization)
  Sender: FDA-Public Use
  Company Number: CH-ELI_LILLY_AND_COMPANY-CH200611003512

PATIENT
  Age: 59 Year
  Sex: Female
  Weight: 70 kg

DRUGS (5)
  1. EVISTA [Suspect]
     Indication: OSTEOPOROSIS
     Dosage: 60 MG, DAILY (1/D)
     Route: 048
     Dates: start: 20060301, end: 20060913
  2. ATACAND /SWE/ [Concomitant]
     Indication: ESSENTIAL HYPERTENSION
     Dosage: 8 MG, DAILY (1/D)
     Route: 048
     Dates: start: 19980101
  3. ARELIX [Concomitant]
     Indication: ESSENTIAL HYPERTENSION
     Dosage: UNK UNK, DAILY (1/D)
     Route: 048
     Dates: start: 19980101
  4. ATORVASTATIN CALCIUM [Concomitant]
     Indication: HYPERLIPIDAEMIA
     Dosage: 20 MG, DAILY (1/D)
     Route: 048
  5. ELTROXIN [Concomitant]
     Indication: HYPOTHYROIDISM
     Dosage: 0.1 MG, DAILY (1/D)
     Route: 048

REACTIONS (1)
  - THROMBOTIC STROKE [None]
